FAERS Safety Report 4511553-7 (Version None)
Quarter: 2004Q4

REPORT INFORMATION
  Report Type: 
  Country: None (occurrence: None)
  Receive Date: 20041129
  Receipt Date: 20040924
  Transmission Date: 20050328
  Serious: Yes (Hospitalization)
  Sender: FDA-Public Use
  Company Number: US-BRISTOL-MYERS SQUIBB COMPANY-12711719

PATIENT
  Age: 34 Year
  Sex: Male
  Weight: 93 kg

DRUGS (2)
  1. ABILIFY [Suspect]
     Route: 048
     Dates: start: 20040922, end: 20040922
  2. LEXAPRO [Concomitant]

REACTIONS (5)
  - CARDIAC ARREST [None]
  - CHILLS [None]
  - DIZZINESS [None]
  - LOSS OF CONSCIOUSNESS [None]
  - SYNCOPE [None]
